FAERS Safety Report 5631160-2 (Version None)
Quarter: 2008Q1

REPORT INFORMATION
  Report Type: 
  Country: None (occurrence: None)
  Receive Date: 20080219
  Receipt Date: 20080123
  Transmission Date: 20080703
  Serious: No
  Sender: FDA-Public Use
  Company Number: US-BOEHRINGER INGELHEIM GMBH, GERMANY-2007-BP-24720BP

PATIENT
  Age: 63 Year
  Sex: Male

DRUGS (1)
  1. FLOMAX [Suspect]
     Indication: BENIGN PROSTATIC HYPERPLASIA
     Route: 048
     Dates: start: 20071201

REACTIONS (5)
  - AMNESIA [None]
  - CHEST DISCOMFORT [None]
  - HEADACHE [None]
  - SKIN TIGHTNESS [None]
  - URINARY INCONTINENCE [None]
